FAERS Safety Report 9965087 (Version 1)
Quarter: 2014Q1

REPORT INFORMATION
  Report Type: Report from Study
  Country: US (occurrence: US)
  Receive Date: 20140305
  Receipt Date: 20140305
  Transmission Date: 20141002
  Serious: No
  Sender: FDA-Public Use
  Company Number: US-ABBVIE-13P-163-1127708-00

PATIENT
  Age: 74 Year
  Sex: Female

DRUGS (11)
  1. HUMIRA [Suspect]
     Indication: RHEUMATOID ARTHRITIS
     Dates: start: 201303
  2. PLAQUENIL [Concomitant]
     Indication: ARTHRALGIA
     Dosage: 200 MG 1-2 AS NEEDED DAILY
  3. TRAMADOL [Concomitant]
     Indication: ARTHRALGIA
     Dosage: 50 MG 1-2 AS NEEDED
  4. METHOTREXATE [Concomitant]
     Indication: PRODUCT USED FOR UNKNOWN INDICATION
  5. LOVASTATIN [Concomitant]
     Indication: BLOOD CHOLESTEROL
     Dosage: 40 MG DAILY
  6. FOLIC ACID [Concomitant]
     Indication: VITAMIN SUPPLEMENTATION
     Dosage: 1 MG DAILY
  7. GLYBURIDE [Concomitant]
     Indication: BLOOD GLUCOSE INCREASED
  8. METOFORMIN [Concomitant]
     Indication: BLOOD GLUCOSE INCREASED
  9. ASPIRIN [Concomitant]
     Indication: CARDIOVASCULAR EVENT PROPHYLAXIS
     Dosage: 81 MG DAILY
  10. CALTRATE + D [Concomitant]
     Indication: OSTEOPOROSIS PROPHYLAXIS
     Dosage: DAILY
  11. LISINOPRIL [Concomitant]
     Indication: BLOOD PRESSURE ABNORMAL
     Dosage: 5 MG DAILY

REACTIONS (1)
  - Urinary tract infection [Recovering/Resolving]
